FAERS Safety Report 7020547-1 (Version None)
Quarter: 2010Q3

REPORT INFORMATION
  Report Type: 
  Country: None (occurrence: None)
  Receive Date: 20100929
  Receipt Date: 20100921
  Transmission Date: 20110219
  Serious: Yes (Other)
  Sender: FDA-Public Use
  Company Number: US-KINGPHARMUSA00001-K201001185

PATIENT
  Age: 25 Year
  Sex: Female

DRUGS (3)
  1. TAPAZOLE [Suspect]
     Indication: BASEDOW'S DISEASE
     Dosage: 10 MG, QD
     Route: 048
  2. PROPYLTHIOURACIL [Suspect]
     Indication: HYPERTHYROIDISM
     Dosage: 50 MG, BID
     Route: 048
  3. PROPYLTHIOURACIL [Suspect]
     Dosage: 50 MG, TID
     Route: 048

REACTIONS (2)
  - ANTI-NEUTROPHIL CYTOPLASMIC ANTIBODY POSITIVE VASCULITIS [None]
  - CROSS SENSITIVITY REACTION [None]
